FAERS Safety Report 6105952-X (Version None)
Quarter: 2009Q1

REPORT INFORMATION
  Report Type: 
  Country: None (occurrence: None)
  Receive Date: 20090306
  Receipt Date: 20080318
  Transmission Date: 20090719
  Serious: Yes (Hospitalization)
  Sender: FDA-Public Use
  Company Number: US-BRISTOL-MYERS SQUIBB COMPANY-14119622

PATIENT
  Age: 75 Year
  Sex: Male
  Weight: 54 kg

DRUGS (1)
  1. TAXOL [Suspect]
     Indication: BLADDER CANCER
     Dosage: ONE-TIME DOSE
     Dates: start: 20061026, end: 20061026

REACTIONS (4)
  - DYSPNOEA [None]
  - FATIGUE [None]
  - HYPOTENSION [None]
  - RECTAL HAEMORRHAGE [None]
